FAERS Safety Report 4681649-8 (Version None)
Quarter: 2005Q2

REPORT INFORMATION
  Report Type: 
  Country: None (occurrence: None)
  Receive Date: 20050603
  Receipt Date: 20050524
  Transmission Date: 20051028
  Serious: Yes (Hospitalization)
  Sender: FDA-Public Use
  Company Number: FR-MERCK-0505FRA00092

PATIENT
  Age: 11 Year
  Sex: Male

DRUGS (3)
  1. FLUTICASONE PROPIONATE [Concomitant]
     Indication: ASTHMA
     Route: 055
  2. SALMETEROL XINAFOATE [Concomitant]
     Indication: ASTHMA
     Route: 055
  3. SINGULAIR [Suspect]
     Indication: ASTHMA
     Route: 048
     Dates: start: 20030101, end: 20050524

REACTIONS (2)
  - MAJOR DEPRESSION [None]
  - SUICIDE ATTEMPT [None]
